FAERS Safety Report 7316622-4 (Version None)
Quarter: 2011Q1

REPORT INFORMATION
  Report Type: 
  Country: None (occurrence: None)
  Receive Date: 20110226
  Receipt Date: 20100721
  Transmission Date: 20110831
  Serious: No
  Sender: FDA-Public Use
  Company Number: US-ALLERGAN-1009480US

PATIENT
  Sex: Male

DRUGS (1)
  1. BOTOX COSMETIC [Suspect]
     Indication: SKIN WRINKLING
     Dosage: 40 UNITS, SINGLE
     Route: 030

REACTIONS (2)
  - FACIAL PARESIS [None]
  - MUSCLE TWITCHING [None]
